FAERS Safety Report 12199100 (Version 1)
Quarter: 2016Q1

REPORT INFORMATION
  Report Type: Spontaneous
  Country: US (occurrence: None)
  Receive Date: 20160321
  Receipt Date: 20160321
  Transmission Date: 20160526
  Serious: Yes (Other)
  Sender: FDA-Public Use
  Company Number: None

PATIENT
  Age: 25 Year
  Sex: Female
  Weight: 51.26 kg

DRUGS (1)
  1. NORETHINDRONE AND ETHINYL ESTRAD [Suspect]
     Active Substance: ETHINYL ESTRADIOL\NORETHINDRONE
     Indication: CONTRACEPTION
     Dosage: ONCE DAILYM TAKEN BY MOUTH
     Dates: start: 201504, end: 20160317

REACTIONS (5)
  - Product substitution issue [None]
  - Headache [None]
  - Mood swings [None]
  - Anxiety [None]
  - Depression [None]

NARRATIVE: CASE EVENT DATE: 20160318
